FAERS Safety Report 20642294 (Version 1)
Quarter: 2022Q1

REPORT INFORMATION
  Report Type: Report from Study
  Country: MX (occurrence: MX)
  Receive Date: 20220328
  Receipt Date: 20220328
  Transmission Date: 20220424
  Serious: Yes (Other)
  Sender: FDA-Public Use
  Company Number: MX-NOVARTISPH-NVSC2022MX069066

PATIENT
  Age: 57 Year
  Sex: Female
  Weight: 60 kg

DRUGS (1)
  1. ACLASTA [Suspect]
     Active Substance: ZOLEDRONIC ACID
     Indication: Osteoporosis
     Dosage: 1 DOSAGE FORM, Q12MO (5 MG, AMPOULE)
     Route: 042
     Dates: start: 20210317

REACTIONS (9)
  - Nasal inflammation [Recovered/Resolved]
  - Nasal septum deviation [Recovered/Resolved]
  - Sinusitis [Recovered/Resolved]
  - Dyspnoea [Recovered/Resolved]
  - COVID-19 [Recovered/Resolved]
  - Apathy [Not Recovered/Not Resolved]
  - Glossitis [Not Recovered/Not Resolved]
  - Weight increased [Not Recovered/Not Resolved]
  - Decreased appetite [Not Recovered/Not Resolved]

NARRATIVE: CASE EVENT DATE: 20211201
